FAERS Safety Report 10343056 (Version 3)
Quarter: 2014Q4

REPORT INFORMATION
  Report Type: Spontaneous
  Country: IT (occurrence: IT)
  Receive Date: 20140725
  Receipt Date: 20141130
  Transmission Date: 20150528
  Serious: Yes (Hospitalization)
  Sender: FDA-Public Use
  Company Number: IT-BRISTOL-MYERS SQUIBB COMPANY-21231154

PATIENT
  Age: 84 Year
  Sex: Male

DRUGS (5)
  1. LEVOFLOXACIN. [Concomitant]
     Active Substance: LEVOFLOXACIN
  2. TRENTAL [Concomitant]
     Active Substance: PENTOXIFYLLINE
  3. CARDIRENE [Concomitant]
     Active Substance: ASPIRIN DL-LYSINE
  4. METFORMIN HCL TABS [Suspect]
     Active Substance: METFORMIN HYDROCHLORIDE
     Indication: DIABETES MELLITUS
     Dosage: 01JUN2014-05JUL2014
     Route: 048
     Dates: start: 20140101, end: 20140705
  5. RYTMONORM [Concomitant]
     Active Substance: PROPAFENONE

REACTIONS (2)
  - Sopor [Recovering/Resolving]
  - Hypoglycaemia [Recovering/Resolving]

NARRATIVE: CASE EVENT DATE: 20140706
